FAERS Safety Report 13753325 (Version 1)
Quarter: 2017Q3

REPORT INFORMATION
  Report Type: Spontaneous
  Country: FR (occurrence: FR)
  Receive Date: 20170713
  Receipt Date: 20170713
  Transmission Date: 20171127
  Serious: Yes (Hospitalization)
  Sender: FDA-Public Use
  Company Number: FR-009507513-1707FRA001874

PATIENT
  Age: 40 Year
  Sex: Female

DRUGS (4)
  1. AMOXICILLIN. [Suspect]
     Active Substance: AMOXICILLIN
     Indication: OROPHARYNGEAL PAIN
     Dosage: 1 G, TID
     Route: 048
     Dates: start: 20170608, end: 20170609
  2. NASONEX [Suspect]
     Active Substance: MOMETASONE FUROATE
     Indication: OROPHARYNGEAL PAIN
     Dosage: 1 DF, TID
     Route: 048
     Dates: start: 20170608, end: 20170609
  3. IBUPROFEN. [Suspect]
     Active Substance: IBUPROFEN
     Indication: OROPHARYNGEAL PAIN
     Dosage: 200 MG, TID
     Route: 048
     Dates: start: 20170608, end: 20170609
  4. ACETAMINOPHEN. [Suspect]
     Active Substance: ACETAMINOPHEN
     Indication: OROPHARYNGEAL PAIN
     Dosage: 1 G, TID
     Route: 048
     Dates: start: 20170608, end: 20170612

REACTIONS (2)
  - Cell death [Recovered/Resolved]
  - Rash [Recovered/Resolved]

NARRATIVE: CASE EVENT DATE: 20170609
